FAERS Safety Report 21722346 (Version 1)
Quarter: 2022Q4

REPORT INFORMATION
  Report Type: Spontaneous
  Country: US (occurrence: US)
  Receive Date: 20221213
  Receipt Date: 20221213
  Transmission Date: 20230113
  Serious: No
  Sender: FDA-Public Use
  Company Number: US-ORGANON-O2212USA000113

PATIENT
  Sex: Female

DRUGS (1)
  1. MAXALT [Suspect]
     Active Substance: RIZATRIPTAN BENZOATE
     Indication: Migraine
     Dosage: UNK
     Route: 048

REACTIONS (3)
  - Hiccups [Unknown]
  - Chest discomfort [Unknown]
  - Infectious mononucleosis [Unknown]

NARRATIVE: CASE EVENT DATE: 20001129
